FAERS Safety Report 25937457 (Version 2)
Quarter: 2025Q4

REPORT INFORMATION
  Report Type: Report from Study
  Country: US (occurrence: US)
  Receive Date: 20251018
  Receipt Date: 20251104
  Transmission Date: 20260117
  Serious: No
  Sender: ABBVIE
  Company Number: US-ABBVIE-6507006

PATIENT
  Age: 66 Year
  Sex: Male

DRUGS (4)
  1. SKYRIZI [Suspect]
     Active Substance: RISANKIZUMAB-RZAA
     Indication: Crohn^s disease
     Dosage: STRENGTH 360MG/2.4ML
     Route: 058
     Dates: start: 20250430, end: 20250430
  2. SKYRIZI [Suspect]
     Active Substance: RISANKIZUMAB-RZAA
     Indication: Crohn^s disease
     Dosage: TIME INTERVAL: TOTAL: AT WEEK 0
     Route: 042
     Dates: start: 20250205, end: 20250205
  3. SKYRIZI [Suspect]
     Active Substance: RISANKIZUMAB-RZAA
     Indication: Crohn^s disease
     Dosage: TIME INTERVAL: TOTAL: AT WEEK 4
     Route: 042
     Dates: start: 20250305, end: 20250305
  4. SKYRIZI [Suspect]
     Active Substance: RISANKIZUMAB-RZAA
     Indication: Crohn^s disease
     Dosage: TIME INTERVAL: TOTAL: AT WEEK 8
     Route: 042
     Dates: start: 20250402, end: 20250402

REACTIONS (8)
  - Cough [Unknown]
  - Nasopharyngitis [Unknown]
  - Injection site reaction [Unknown]
  - Injection site swelling [Unknown]
  - Diarrhoea [Unknown]
  - Oropharyngeal pain [Unknown]
  - Anaemia [Unknown]
  - Faeces soft [Unknown]

NARRATIVE: CASE EVENT DATE: 20250101
